FAERS Safety Report 4326349-9 (Version None)
Quarter: 2004Q1

REPORT INFORMATION
  Report Type: 
  Country: None (occurrence: None)
  Receive Date: 20040329
  Receipt Date: 20040329
  Transmission Date: 20041129
  Serious: Yes (Hospitalization, Other)
  Sender: FDA-Public Use
  Company Number: None

PATIENT
  Age: 13 Year
  Sex: Male

DRUGS (1)
  1. PROMETHAZINE [Suspect]
     Indication: NAUSEA
     Dosage: 12.5 MG ONCE IV
     Route: 042
     Dates: start: 20040326, end: 20040326

REACTIONS (3)
  - AGGRESSION [None]
  - AGITATION [None]
  - CONFUSIONAL STATE [None]
